FAERS Safety Report 5976249-3 (Version None)
Quarter: 2008Q4

REPORT INFORMATION
  Report Type: 
  Country: None (occurrence: None)
  Receive Date: 20081202
  Receipt Date: 20081120
  Transmission Date: 20090506
  Serious: Yes (Hospitalization)
  Sender: FDA-Public Use
  Company Number: ES-ROCHE-598286

PATIENT
  Age: 79 Year
  Sex: Female

DRUGS (1)
  1. VALIUM [Suspect]
     Indication: DRUG USE FOR UNKNOWN INDICATION
     Route: 048
     Dates: start: 20070312, end: 20081017

REACTIONS (2)
  - FALL [None]
  - RIB FRACTURE [None]
